FAERS Safety Report 5638869-5 (Version None)
Quarter: 2008Q1

REPORT INFORMATION
  Report Type: 
  Country: None (occurrence: None)
  Receive Date: 20080226
  Receipt Date: 20080215
  Transmission Date: 20080703
  Serious: Yes (Other)
  Sender: FDA-Public Use
  Company Number: FR-ROCHE-547912

PATIENT
  Age: 20 Year
  Sex: Female

DRUGS (12)
  1. RIVOTRIL [Suspect]
     Indication: KERATITIS
     Route: 048
     Dates: start: 20080124, end: 20080125
  2. LAROXYL [Suspect]
     Indication: KERATITIS
     Route: 048
     Dates: start: 20080124, end: 20080125
  3. PLITICAN [Suspect]
     Dosage: DOSAGE REGIMEN: ONE DOSE FORM (AMPOULE) DAILY WHEN NEEDED FOR SEVERAL MONTHS
     Route: 042
  4. PLITICAN [Suspect]
     Dosage: DOSAGE INCREASED TO ONE DOSE DAILY
     Route: 042
     Dates: start: 20080120, end: 20080125
  5. VISTIDE [Concomitant]
  6. TAZOCILLINE [Concomitant]
  7. CANCIDAS [Concomitant]
  8. NUBAIN [Concomitant]
  9. MOPRAL [Concomitant]
  10. NEORAL [Concomitant]
  11. NOXAFIL [Concomitant]
  12. IMOVANE [Concomitant]

REACTIONS (1)
  - PARKINSONISM [None]
